FAERS Safety Report 16295543 (Version 1)
Quarter: 2019Q2

REPORT INFORMATION
  Report Type: Spontaneous
  Country: US (occurrence: US)
  Receive Date: 20190404
  Receipt Date: 20190404
  Transmission Date: 20190711
  Serious: No
  Sender: FDA-Public Use
  Company Number: None

PATIENT
  Age: 76 Year
  Sex: Female
  Weight: 63.5 kg

DRUGS (10)
  1. MAGNESIUM [Concomitant]
     Active Substance: MAGNESIUM
  2. METHENAMINE [Concomitant]
     Active Substance: METHENAMINE
  3. PROBIOTIC [Concomitant]
     Active Substance: PROBIOTICS NOS
  4. WARFARIN [Concomitant]
     Active Substance: WARFARIN
  5. MULTI VITAMIN [Concomitant]
     Active Substance: VITAMINS
  6. BIOTIN [Concomitant]
     Active Substance: BIOTIN
  7. ACYCLOVIR. [Concomitant]
     Active Substance: ACYCLOVIR
  8. PROPAFENONE HCL [Suspect]
     Active Substance: PROPAFENONE HYDROCHLORIDE
     Indication: ATRIAL FIBRILLATION
     Dosage: ?          QUANTITY:1 DF DOSAGE FORM;?
     Route: 048
     Dates: start: 20190121, end: 20190126
  9. FLAX SEED [Concomitant]
     Active Substance: FLAX SEED
  10. VITAMIN C [Concomitant]
     Active Substance: ASCORBIC ACID

REACTIONS (3)
  - Paraesthesia [None]
  - Nightmare [None]
  - Dyskinesia [None]

NARRATIVE: CASE EVENT DATE: 20190215
